FAERS Safety Report 23461045 (Version 1)
Quarter: 2024Q1

REPORT INFORMATION
  Report Type: Spontaneous
  Country: CA (occurrence: CA)
  Receive Date: 20240131
  Receipt Date: 20240131
  Transmission Date: 20240410
  Serious: Yes (Other)
  Sender: FDA-Public Use
  Company Number: CA-PFIZER INC-202300377351

PATIENT
  Age: 67 Year
  Sex: Female
  Weight: 87 kg

DRUGS (26)
  1. RUXIENCE [Suspect]
     Active Substance: RITUXIMAB-PVVR
     Indication: Granulomatosis with polyangiitis
     Dosage: 500 MG, EVERY (Q) 14 DAYS X 2 DOSES AT 6 MONTHS
     Route: 042
     Dates: start: 202305
  2. RUXIENCE [Suspect]
     Active Substance: RITUXIMAB-PVVR
     Indication: Anti-neutrophil cytoplasmic antibody positive vasculitis
     Dosage: 500 MG (DAY1) 2 DOSES, EVERY 6 MONTHS
     Route: 042
     Dates: start: 20231214
  3. RUXIENCE [Suspect]
     Active Substance: RITUXIMAB-PVVR
     Dosage: 500 MG 2 DOSES, EVERY 6 MONTHS (WEEK 2)
     Route: 042
     Dates: start: 20231227
  4. LORATADINE [Concomitant]
     Active Substance: LORATADINE
     Indication: Premedication
     Dosage: 20 MG
  5. LORATADINE [Concomitant]
     Active Substance: LORATADINE
     Dosage: 10 MG BEFORE RITUXIMAB DOSE
     Dates: start: 20231227, end: 20231227
  6. ACETAMINOPHEN [Concomitant]
     Active Substance: ACETAMINOPHEN
     Indication: Premedication
     Dosage: UNK
     Dates: start: 20231227, end: 20231227
  7. METHYLPREDNISOLONE [Concomitant]
     Active Substance: METHYLPREDNISOLONE
     Indication: Premedication
     Dosage: UNK
     Dates: start: 20231227, end: 20231227
  8. SYMBICORT [Concomitant]
     Active Substance: BUDESONIDE\FORMOTEROL FUMARATE DIHYDRATE
     Indication: Asthma
     Dosage: 1 INHALATION ORALLY, 2X/DAY (MORNING + NIGHT REGULARLY)
  9. POLYETHYLENE GLYCOL 3350 [Concomitant]
     Active Substance: POLYETHYLENE GLYCOL 3350
     Dosage: 1 DF (DISSOLVE 17 G WITH A LIQUID ONCE DAILY)
     Route: 048
  10. APO ATORVASTATIN [ATORVASTATIN CALCIUM] [Concomitant]
     Dosage: 1 DF (20 MG), DAILY AT BEDTIME
     Route: 048
  11. APO-TRYPTOPHAN [Concomitant]
     Dosage: 6 DF (3 G), DAILY AT BEDTIME
  12. PREDNISONE [Concomitant]
     Active Substance: PREDNISONE
     Dosage: TAKE 3 TABLETS ONCE DAILY IN THE AM, ALTERNATING WITH 4 TABLETS FOR 1 MONTH THEN DECREASE TO 3 TABLE
     Route: 048
  13. NOVO GESIC [Concomitant]
     Indication: Pain
     Dosage: 2 DF (325 MG CAPLET), EVERY 6 HOURS AS NEEDED
     Route: 048
  14. NOVO GESIC [Concomitant]
     Indication: Pyrexia
  15. JAMP NYSTATIN [Concomitant]
     Dosage: SWISH IN MOUTH AND SWALLOW 5 ML 4 TIMES A DAY.
  16. AMLODIPINE BESYLATE [Concomitant]
     Active Substance: AMLODIPINE BESYLATE
     Dosage: 1 DF, DAILY AT BEDTIME
  17. RIVA ALENDRONATE [Concomitant]
     Dosage: 1 DF, WEEKLY 30 MINUTES BEFORE BREAKFAST
  18. SULFATRIM [Concomitant]
     Active Substance: SULFAMETHOXAZOLE\TRIMETHOPRIM
     Dosage: 1 DF, DAILY 3 TIMES A WEEK (MON-WED-FRI)
  19. VALSARTAN [Concomitant]
     Active Substance: VALSARTAN
     Dosage: 1 DF, DAILY
  20. SANDOZ REPAGLINIDE [Concomitant]
     Dosage: 1 DF, 2X/DAY
  21. SITAGLIPTIN [Concomitant]
     Active Substance: SITAGLIPTIN
     Dosage: 1 DF, DAILY WITH BREAKFAST
  22. CALCIUM CARBONATE [Concomitant]
     Active Substance: CALCIUM CARBONATE
     Dosage: 1 DF, 2X/DAY
  23. SYNTHROID [Concomitant]
     Active Substance: LEVOTHYROXINE SODIUM
     Dosage: 1 DF, DAILY WITH BREAKFAST
  24. DEXILANT [Concomitant]
     Active Substance: DEXLANSOPRAZOLE
     Dosage: 1 DF, DAILY WITH BREAKFAST
  25. JAMP SENNOSIDES [Concomitant]
     Dosage: 2 DF, DAILY AT BEDTIME
  26. APO FAMOTIDINE [Concomitant]
     Dosage: 0.5 DF BEFORE RITUXIMAB DOSE
     Dates: start: 20231227, end: 20231227

REACTIONS (9)
  - Immunosuppression [Unknown]
  - Viral infection [Recovered/Resolved]
  - Hyperhidrosis [Recovered/Resolved]
  - Headache [Not Recovered/Not Resolved]
  - Feeling of body temperature change [Recovered/Resolved]
  - Diarrhoea [Recovered/Resolved]
  - Herpes zoster [Recovered/Resolved]
  - Off label use [Unknown]
  - Incorrect product administration duration [Unknown]

NARRATIVE: CASE EVENT DATE: 20230501
